FAERS Safety Report 5848070-8 (Version None)
Quarter: 2008Q3

REPORT INFORMATION
  Report Type: 
  Country: None (occurrence: None)
  Receive Date: 20080814
  Receipt Date: 20070328
  Transmission Date: 20090109
  Serious: Yes (Hospitalization)
  Sender: FDA-Public Use
  Company Number: 2007-00200FE

PATIENT
  Age: 28 Year
  Sex: Female

DRUGS (3)
  1. MENOPUR [Suspect]
     Indication: INFERTILITY
     Dosage: 75 IU, SC
     Route: 058
     Dates: start: 20061204, end: 20061213
  2. GONADOTROPHINE CHORIONIQUE (GONADOTROPHIN CHORIONIC) [Suspect]
     Indication: OVULATION INDUCTION
     Dosage: 5000 IU, IM
     Route: 030
     Dates: start: 20061214, end: 20061214
  3. PROGESTERONE [Concomitant]

REACTIONS (3)
  - ABORTION INDUCED [None]
  - DRUG EXPOSURE DURING PREGNANCY [None]
  - MULTIPLE PREGNANCY [None]
